FAERS Safety Report 8131259-5 (Version None)
Quarter: 2012Q1

REPORT INFORMATION
  Report Type: 
  Country: None (occurrence: None)
  Receive Date: 20120210
  Receipt Date: 20120210
  Transmission Date: 20120608
  Serious: Yes (Life-Threatening, Hospitalization)
  Sender: FDA-Public Use
  Company Number: None

PATIENT
  Sex: Male
  Weight: 109 kg

DRUGS (12)
  1. LISINOPRIL [Concomitant]
  2. LORATADINE [Concomitant]
  3. HYDRALAZINE HCL [Concomitant]
  4. FERROUS SULFATE [Concomitant]
  5. INSULIN ISOPHANE NPH (HUMAN) [Concomitant]
  6. CARVEDILOL [Concomitant]
  7. DULOXETIME HYDROCHLORIDE [Concomitant]
  8. PRADAXA [Suspect]
     Dosage: 150 MG TWICE DAILY ORAL
     Route: 048
  9. ASPIRIN [Concomitant]
  10. ISOSORBIDE MONONITRATE [Concomitant]
  11. LEVOTHYROXINE SODIUM [Concomitant]
  12. NIACIN [Concomitant]

REACTIONS (3)
  - HAEMOTHORAX [None]
  - SHOCK HAEMORRHAGIC [None]
  - CARDIAC ARREST [None]
